FAERS Safety Report 17478717 (Version 1)
Quarter: 2020Q1

REPORT INFORMATION
  Report Type: Spontaneous
  Country: DE (occurrence: DE)
  Receive Date: 20200228
  Receipt Date: 20200228
  Transmission Date: 20200409
  Serious: Yes (Hospitalization, Other)
  Sender: FDA-Public Use
  Company Number: DE-PFIZER INC-2020085725

PATIENT
  Age: 69 Year
  Sex: Male

DRUGS (1)
  1. CLINDAMYCIN. [Suspect]
     Active Substance: CLINDAMYCIN
     Dosage: UNK MG, UNK

REACTIONS (3)
  - Abscess of salivary gland [Unknown]
  - Chest discomfort [Unknown]
  - Sialoadenitis [Unknown]
